FAERS Safety Report 6772528-0 (Version None)
Quarter: 2010Q2

REPORT INFORMATION
  Report Type: 
  Country: None (occurrence: None)
  Receive Date: 20100616
  Receipt Date: 20091023
  Transmission Date: 20101027
  Serious: No
  Sender: FDA-Public Use
  Company Number: US-ASTRAZENECA-2009SE22273

PATIENT
  Age: 71 Year
  Sex: Male

DRUGS (7)
  1. PULMICORT [Suspect]
     Indication: CHRONIC OBSTRUCTIVE PULMONARY DISEASE
     Dosage: BID
     Route: 055
     Dates: start: 20090701
  2. PULMICORT [Suspect]
     Indication: ASTHMA
     Dosage: BID
     Route: 055
     Dates: start: 20090701
  3. BROVANA [Suspect]
     Indication: CHRONIC OBSTRUCTIVE PULMONARY DISEASE
     Dosage: 15 UG/ 2 ML BID
     Route: 055
     Dates: start: 20090701
  4. BROVANA [Suspect]
     Indication: ASTHMA
     Dosage: 15 UG/ 2 ML BID
     Route: 055
     Dates: start: 20090701
  5. NEXIUM [Concomitant]
  6. ENALAPRIL MALEATE [Concomitant]
  7. COMBIVENT [Concomitant]

REACTIONS (4)
  - ASTHMA [None]
  - CHRONIC OBSTRUCTIVE PULMONARY DISEASE [None]
  - DRUG EFFECT DECREASED [None]
  - DYSPNOEA [None]
